FAERS Safety Report 22067050 (Version 2)
Quarter: 2023Q2

REPORT INFORMATION
  Report Type: Spontaneous
  Country: TR (occurrence: TR)
  Receive Date: 20230306
  Receipt Date: 20230410
  Transmission Date: 20230722
  Serious: Yes (Hospitalization)
  Sender: FDA-Public Use
  Company Number: TR-NOVOPROD-1030542

PATIENT
  Sex: Female
  Weight: 2.8 kg

DRUGS (5)
  1. LEVEMIR [Suspect]
     Active Substance: INSULIN DETEMIR
     Dosage: 10 IU, QD
     Route: 064
     Dates: start: 20221218
  2. LEVEMIR [Suspect]
     Active Substance: INSULIN DETEMIR
     Indication: Gestational diabetes
     Dosage: 4 IU, QD
     Route: 064
     Dates: start: 20220527, end: 20221218
  3. METFORMIN HYDROCHLORIDE [Concomitant]
     Active Substance: METFORMIN HYDROCHLORIDE
     Indication: Type 2 diabetes mellitus
     Dosage: 1000 MG, QD
     Route: 064
  4. NOVORAPID [Suspect]
     Active Substance: INSULIN ASPART
     Indication: Gestational diabetes
     Dosage: 4 IU, TID
     Route: 064
     Dates: start: 20220527, end: 20221218
  5. NOVORAPID [Suspect]
     Active Substance: INSULIN ASPART
     Dosage: 8 IU, TID
     Route: 064
     Dates: start: 20221218

REACTIONS (3)
  - Jaundice neonatal [Recovered/Resolved]
  - Hypoglycaemia neonatal [Recovered/Resolved]
  - Foetal exposure during pregnancy [Recovered/Resolved]

NARRATIVE: CASE EVENT DATE: 20220527
